FAERS Safety Report 18395280 (Version 1)
Quarter: 2020Q4

REPORT INFORMATION
  Report Type: Spontaneous
  Country: US (occurrence: US)
  Receive Date: 20201017
  Receipt Date: 20201017
  Transmission Date: 20210114
  Serious: Yes (Life-Threatening, Hospitalization, Other)
  Sender: FDA-Public Use
  Company Number: US-LUPIN PHARMACEUTICALS INC.-2020-07297

PATIENT
  Age: 41 Year
  Sex: Female

DRUGS (1)
  1. DROSPIRENONE AND ETHINYL ESTRADIOL [Suspect]
     Active Substance: DROSPIRENONE\ETHINYL ESTRADIOL
     Indication: ORAL CONTRACEPTION
     Dosage: UNK UNK, QD
     Route: 048

REACTIONS (7)
  - Intraventricular haemorrhage [Unknown]
  - Hypercoagulation [Unknown]
  - Cerebral venous sinus thrombosis [Unknown]
  - Noninfective encephalitis [Unknown]
  - Condition aggravated [Unknown]
  - Brain oedema [Unknown]
  - Cerebral infarction [Unknown]
